FAERS Safety Report 20391808 (Version 1)
Quarter: 2022Q1

REPORT INFORMATION
  Report Type: Spontaneous
  Country: US (occurrence: US)
  Receive Date: 20220128
  Receipt Date: 20220128
  Transmission Date: 20220423
  Serious: No
  Sender: FDA-Public Use
  Company Number: US-GLENMARK PHARMACEUTICALS-2021GMK067887

PATIENT

DRUGS (2)
  1. DESONIDE [Suspect]
     Active Substance: DESONIDE
     Indication: Pruritus
     Dosage: UNK UNK, BID
     Route: 061
     Dates: start: 20210908
  2. DESONIDE [Suspect]
     Active Substance: DESONIDE
     Indication: Erythema

REACTIONS (3)
  - Feeling hot [Recovered/Resolved]
  - Erythema [Not Recovered/Not Resolved]
  - Condition aggravated [Not Recovered/Not Resolved]

NARRATIVE: CASE EVENT DATE: 20210908
